FAERS Safety Report 11147851 (Version 1)
Quarter: 2015Q2

REPORT INFORMATION
  Report Type: Spontaneous
  Country: US (occurrence: US)
  Receive Date: 20150529
  Receipt Date: 20150529
  Transmission Date: 20150821
  Serious: Yes (Other)
  Sender: FDA-Public Use
  Company Number: US-BRISTOL-MYERS SQUIBB COMPANY-BMS-2015-031873

PATIENT

DRUGS (3)
  1. VEPESIDE [Suspect]
     Active Substance: ETOPOSIDE
     Indication: PARATHYROID TUMOUR MALIGNANT
     Route: 065
  2. CISPLATIN. [Suspect]
     Active Substance: CISPLATIN
     Indication: PARATHYROID TUMOUR MALIGNANT
     Route: 065
  3. TOPOTECAN [Suspect]
     Active Substance: TOPOTECAN\TOPOTECAN HYDROCHLORIDE
     Indication: PARATHYROID TUMOUR MALIGNANT
     Route: 065

REACTIONS (2)
  - Off label use [Unknown]
  - Malignant neoplasm progression [Unknown]
